FAERS Safety Report 14842278 (Version 2)
Quarter: 2018Q3

REPORT INFORMATION
  Report Type: Report from Study
  Country: CA (occurrence: CA)
  Receive Date: 20180503
  Receipt Date: 20180704
  Transmission Date: 20181010
  Serious: Yes (Life-Threatening, Hospitalization)
  Sender: FDA-Public Use
  Company Number: CA-UCBSA-2018018336

PATIENT
  Age: 46 Year
  Sex: Female

DRUGS (1)
  1. CERTOLIZUMAB PEGOL ASP [Suspect]
     Active Substance: CERTOLIZUMAB PEGOL
     Indication: ANKYLOSING SPONDYLITIS
     Dosage: 400 MG, EV 2 WEEKS(QOW)
     Route: 058
     Dates: start: 20180423

REACTIONS (6)
  - Feeling cold [Unknown]
  - Dyspnoea [Unknown]
  - Throat tightness [Unknown]
  - Flushing [Unknown]
  - Malaise [Unknown]
  - Pallor [Unknown]

NARRATIVE: CASE EVENT DATE: 20180423
